FAERS Safety Report 15958266 (Version 4)
Quarter: 2019Q1

REPORT INFORMATION
  Report Type: Spontaneous
  Country: JP (occurrence: JP)
  Receive Date: 20190213
  Receipt Date: 20190313
  Transmission Date: 20190417
  Serious: Yes (Death, Hospitalization)
  Sender: FDA-Public Use
  Company Number: JP-EISAI MEDICAL RESEARCH-EC-2019-051921

PATIENT
  Age: 67 Year
  Sex: Female
  Weight: 82 kg

DRUGS (2)
  1. LENVIMA [Suspect]
     Active Substance: LENVATINIB
     Indication: HEPATOCELLULAR CARCINOMA
     Route: 048
     Dates: start: 20181218
  2. LENVIMA [Suspect]
     Active Substance: LENVATINIB
     Dosage: FREQUENCY AND DOSING NOT PROVIDED
     Route: 048
     Dates: end: 20190208

REACTIONS (5)
  - Decreased appetite [Unknown]
  - Fall [Unknown]
  - Traumatic intracranial haemorrhage [Fatal]
  - Proteinuria [Unknown]
  - Anaemia [Unknown]

NARRATIVE: CASE EVENT DATE: 20190207
